FAERS Safety Report 24164345 (Version 1)
Quarter: 2024Q3

REPORT INFORMATION
  Report Type: Spontaneous
  Country: FR (occurrence: FR)
  Receive Date: 20240801
  Receipt Date: 20240801
  Transmission Date: 20241017
  Serious: Yes (Other)
  Sender: MYLAN
  Company Number: FR-ADIENNEP-2024AD000591

PATIENT
  Sex: Male

DRUGS (13)
  1. MYCOPHENOLATE MOFETIL [Suspect]
     Active Substance: MYCOPHENOLATE MOFETIL
     Indication: Prophylaxis against graft versus host disease
     Dosage: 15 MILLIGRAM/KILOGRAM, TID (0.33 DAY) (THREE TIMES A DAY FROM DAY +5)
     Route: 065
  2. BUSULFAN [Suspect]
     Active Substance: BUSULFAN
     Indication: Allogenic stem cell transplantation
     Dosage: 100 MILLIGRAM/SQ. METER, (2 X 4 DAYS (FROM DAY -6 TO DAY -3))
     Route: 065
  3. FLUDARABINE [Suspect]
     Active Substance: FLUDARABINE PHOSPHATE
     Indication: Allogenic stem cell transplantation
     Dosage: 40 MILLIGRAM/SQ. METER, (2 X 5 DAYS (FROM DAY -6 TO DAY -2))
     Route: 065
  4. CYCLOPHOSPHAMIDE [Suspect]
     Active Substance: CYCLOPHOSPHAMIDE
     Indication: Prophylaxis against graft versus host disease
     Dosage: 50 MILLIGRAM/KILOGRAM, QD (ON DAYS +3 AND +4)
     Route: 065
  5. THIOTEPA [Suspect]
     Active Substance: THIOTEPA
     Indication: Allogenic stem cell transplantation
     Dosage: 5 MILLIGRAM/KILOGRAM, QD (ON DAY -9)
     Route: 065
  6. CYCLOSPORINE [Suspect]
     Active Substance: CYCLOSPORINE
     Indication: Prophylaxis against graft versus host disease
     Dosage: 1.5 MILLIGRAM/KILOGRAM, BID (0.5 DAY) (TWICE A DAY FROM DAY +5)
     Route: 065
  7. LAPINE T-LYMPHOCYTE IMMUNE GLOBULIN [Suspect]
     Active Substance: LAPINE T-LYMPHOCYTE IMMUNE GLOBULIN
     Indication: Allogenic stem cell transplantation
     Dosage: 1.5 MILLIGRAM/KILOGRAM, (3 DAYS (FROM DAY -12 TO DAY -10))
     Route: 065
  8. URSODIOL [Concomitant]
     Active Substance: URSODIOL
     Indication: Prophylaxis
     Dosage: UNK
     Route: 065
  9. FLUCONAZOLE [Concomitant]
     Active Substance: FLUCONAZOLE
     Indication: Antifungal prophylaxis
     Dosage: UNK
     Route: 065
  10. COTRIMOXAZOLE [Concomitant]
     Active Substance: SULFAMETHOXAZOLE\TRIMETHOPRIM
     Indication: Antibiotic prophylaxis
     Dosage: UNK
     Route: 065
  11. VALACYCLOVIR HYDROCHLORIDE [Concomitant]
     Active Substance: VALACYCLOVIR HYDROCHLORIDE
     Indication: Antiviral prophylaxis
     Dosage: UNK
     Route: 065
  12. HEPARIN [Concomitant]
     Active Substance: HEPARIN SODIUM
     Indication: Prophylaxis
     Dosage: UNK
     Route: 065
  13. LEVETIRACETAM [Concomitant]
     Active Substance: LEVETIRACETAM
     Indication: Seizure prophylaxis
     Dosage: UNK
     Route: 065

REACTIONS (2)
  - Human herpesvirus 6 infection [Unknown]
  - Mucosal inflammation [Unknown]
